FAERS Safety Report 15819132 (Version 1)
Quarter: 2019Q1

REPORT INFORMATION
  Report Type: Spontaneous
  Country: US (occurrence: US)
  Receive Date: 20190114
  Receipt Date: 20190114
  Transmission Date: 20190417
  Serious: No
  Sender: FDA-Public Use
  Company Number: US-ROCHE-2220229

PATIENT
  Age: 9 Year
  Sex: Male

DRUGS (1)
  1. NUTROPIN AQ [Suspect]
     Active Substance: SOMATROPIN
     Indication: ADRENAL INSUFFICIENCY
     Route: 065
     Dates: start: 201801

REACTIONS (3)
  - Device malfunction [Unknown]
  - No adverse event [Unknown]
  - Product dose omission [Unknown]

NARRATIVE: CASE EVENT DATE: 20181120
